FAERS Safety Report 5047779-6 (Version None)
Quarter: 2006Q2

REPORT INFORMATION
  Report Type: 
  Country: None (occurrence: None)
  Receive Date: 20060630
  Receipt Date: 20060623
  Transmission Date: 20061013
  Serious: Yes (Disabling, Other)
  Sender: FDA-Public Use
  Company Number: HQWYE370526JUN06

PATIENT
  Age: 50 Year
  Sex: Female

DRUGS (1)
  1. EFFEXOR XR [Suspect]
     Indication: ANXIETY
     Dosage: 75 MG 1X PER 1 DAY
     Dates: start: 20060101, end: 20060101

REACTIONS (4)
  - DIZZINESS [None]
  - LABILE BLOOD PRESSURE [None]
  - PHAEOCHROMOCYTOMA [None]
  - SENSORY DISTURBANCE [None]
